FAERS Safety Report 6376041-4 (Version None)
Quarter: 2009Q3

REPORT INFORMATION
  Report Type: 
  Country: None (occurrence: None)
  Receive Date: 20090924
  Receipt Date: 20090921
  Transmission Date: 20100115
  Serious: Yes (Death, Hospitalization, Other)
  Sender: FDA-Public Use
  Company Number: PHHY2009BR40647

PATIENT
  Sex: Male

DRUGS (4)
  1. FORASEQ [Suspect]
     Indication: PULMONARY FIBROSIS
     Dosage: UNK
     Dates: start: 20090601
  2. SPIRIVA [Concomitant]
     Indication: PULMONARY FIBROSIS
  3. ZOCOR [Concomitant]
     Indication: BLOOD CHOLESTEROL
     Route: 048
  4. ASPIRIN [Concomitant]

REACTIONS (3)
  - PNEUMONIA [None]
  - PULMONARY FIBROSIS [None]
  - THROMBOSIS [None]
